FAERS Safety Report 26157814 (Version 1)
Quarter: 2025Q4

REPORT INFORMATION
  Report Type: Report from Study
  Country: US (occurrence: US)
  Receive Date: 20251215
  Receipt Date: 20251215
  Transmission Date: 20260118
  Serious: Yes (Death, Other)
  Sender: TAKEDA
  Company Number: US-TAKEDA-2025TUS113839

PATIENT
  Age: 61 Year
  Sex: Male

DRUGS (1)
  1. MARIBAVIR [Suspect]
     Active Substance: MARIBAVIR
     Indication: Neutropenia
     Dosage: 200 MILLIGRAM, BID
     Dates: start: 20251122

REACTIONS (1)
  - Death [Fatal]
